FAERS Safety Report 7560045-X (Version None)
Quarter: 2011Q2

REPORT INFORMATION
  Report Type: 
  Country: None (occurrence: None)
  Receive Date: 20110614
  Receipt Date: 20110531
  Transmission Date: 20111010
  Serious: Yes (Other)
  Sender: FDA-Public Use
  Company Number: TUK2011A00058

PATIENT
  Age: 72 Year
  Sex: Female

DRUGS (8)
  1. RAMIPRIL [Concomitant]
  2. GLICLAZIDE (GLICLAZIDE) [Concomitant]
  3. ACTOS [Suspect]
     Indication: DIABETES MELLITUS
     Dosage: 15 MG (15 MG) ORAL, 30 MG (30 MG) ORAL, 90 MG, (45 MG) ORAL, ORAL
     Route: 048
     Dates: start: 20091029, end: 20091201
  4. ACTOS [Suspect]
     Indication: DIABETES MELLITUS
     Dosage: 15 MG (15 MG) ORAL, 30 MG (30 MG) ORAL, 90 MG, (45 MG) ORAL, ORAL
     Route: 048
     Dates: start: 20091202, end: 20110516
  5. ACTOS [Suspect]
     Indication: DIABETES MELLITUS
     Dosage: 15 MG (15 MG) ORAL, 30 MG (30 MG) ORAL, 90 MG, (45 MG) ORAL, ORAL
     Route: 048
     Dates: start: 20110517
  6. ACTOS [Suspect]
     Indication: DIABETES MELLITUS
     Dosage: 15 MG (15 MG) ORAL, 30 MG (30 MG) ORAL, 90 MG, (45 MG) ORAL, ORAL
     Route: 048
     Dates: start: 20090923, end: 20091028
  7. ASPIRIN [Concomitant]
  8. METFORMIN MR (METFORMIN) [Concomitant]

REACTIONS (8)
  - HAEMOGLOBIN DECREASED [None]
  - GLYCOSYLATED HAEMOGLOBIN INCREASED [None]
  - BONE DENSITY DECREASED [None]
  - RADIUS FRACTURE [None]
  - OSTEOPOROSIS [None]
  - BLOOD THYROID STIMULATING HORMONE INCREASED [None]
  - OVERDOSE [None]
  - RED BLOOD CELL COUNT DECREASED [None]
